FAERS Safety Report 12831520 (Version 1)
Quarter: 2016Q4

REPORT INFORMATION
  Report Type: Spontaneous
  Country: JP (occurrence: JP)
  Receive Date: 20161009
  Receipt Date: 20161009
  Transmission Date: 20170207
  Serious: Yes (Other)
  Sender: FDA-Public Use
  Company Number: PHJP2016JP028426

PATIENT

DRUGS (2)
  1. AFINITOR [Suspect]
     Active Substance: EVEROLIMUS
     Dosage: DOSE FOR THE MOTHER, 5 MG; QD
     Route: 064
  2. AFINITOR [Suspect]
     Active Substance: EVEROLIMUS
     Indication: ANGIOMYOLIPOMA
     Dosage: DOSE FOR THE MOTHER, 10 MG; UNK
     Route: 064
     Dates: start: 201310

REACTIONS (2)
  - Foetal exposure during pregnancy [Unknown]
  - Cardiac hypertrophy [Unknown]
